FAERS Safety Report 6039414-5 (Version None)
Quarter: 2009Q1

REPORT INFORMATION
  Report Type: 
  Country: None (occurrence: None)
  Receive Date: 20090114
  Receipt Date: 20090108
  Transmission Date: 20090719
  Serious: Yes (Life-Threatening)
  Sender: FDA-Public Use
  Company Number: PTA2009000027

PATIENT
  Age: 54 Year
  Sex: Male
  Weight: 71.4 kg

DRUGS (5)
  1. FLUOROURACIL [Suspect]
     Dosage: 2800 MG,
     Dates: start: 20081202, end: 20081203
  2. ERBITUX [Suspect]
     Indication: COLORECTAL CANCER
     Dosage: 700 MG, INTRAVENOUS
     Route: 042
     Dates: start: 20081202, end: 20081202
  3. OXALIPLATIN [Suspect]
     Indication: COLORECTAL CANCER
     Dosage: 147 MG,
     Dates: start: 20081202, end: 20081202
  4. CYCLIZINE [Concomitant]
  5. DEXAMETHASONE TAB [Concomitant]

REACTIONS (1)
  - VENTRICULAR TACHYCARDIA [None]
